FAERS Safety Report 7516237-9 (Version None)
Quarter: 2011Q2

REPORT INFORMATION
  Report Type: 
  Country: None (occurrence: None)
  Receive Date: 20110601
  Receipt Date: 20110526
  Transmission Date: 20111010
  Serious: No
  Sender: FDA-Public Use
  Company Number: US-PFIZER INC-2011114639

PATIENT
  Sex: Female
  Weight: 58.957 kg

DRUGS (2)
  1. ADVIL LIQUI-GELS [Suspect]
     Indication: ARTHRALGIA
     Dosage: 2 DF, AS NEEDED
     Route: 048
     Dates: start: 20060101, end: 20110501
  2. ADVIL LIQUI-GELS [Suspect]
     Indication: BACK PAIN

REACTIONS (1)
  - FOREIGN BODY [None]
